FAERS Safety Report 24163144 (Version 1)
Quarter: 2024Q3

REPORT INFORMATION
  Report Type: Spontaneous
  Country: US (occurrence: US)
  Receive Date: 20240801
  Receipt Date: 20240801
  Transmission Date: 20241017
  Serious: No
  Sender: ARBOR
  Company Number: US-AZURITY PHARMACEUTICALS, INC.-US-2024AZR000117

PATIENT
  Age: 8 Year
  Sex: Female
  Weight: 29.6 kg

DRUGS (5)
  1. TRIPTODUR [Suspect]
     Active Substance: TRIPTORELIN
     Indication: Precocious puberty
     Dosage: UNK, SINGLE
     Route: 030
  2. TRIPTODUR [Suspect]
     Active Substance: TRIPTORELIN
  3. TRIPTODUR [Suspect]
     Active Substance: TRIPTORELIN
  4. CETIRIZINE HYDROCHLORIDE [Concomitant]
     Active Substance: CETIRIZINE HYDROCHLORIDE
     Indication: Hypersensitivity
     Dosage: 10 MG, QD
     Route: 048
  5. FLUTICASONE [Concomitant]
     Active Substance: FLUTICASONE
     Indication: Hypersensitivity
     Dosage: 44 MICROGRAM, BID
     Route: 055

REACTIONS (3)
  - Product dose omission issue [Recovering/Resolving]
  - Inappropriate schedule of product administration [Recovering/Resolving]
  - Physical product label issue [Recovering/Resolving]

NARRATIVE: CASE EVENT DATE: 20240129
